FAERS Safety Report 20343905 (Version 2)
Quarter: 2022Q1

REPORT INFORMATION
  Report Type: Other
  Country: GB (occurrence: GB)
  Receive Date: 20220118
  Receipt Date: 20220127
  Transmission Date: 20220424
  Serious: Yes (Other)
  Sender: FDA-Public Use
  Company Number: GB-CELLTRION INC.-2022GB000377

PATIENT

DRUGS (4)
  1. INFLIXIMAB [Suspect]
     Active Substance: INFLIXIMAB
     Indication: Product used for unknown indication
     Dosage: 255 MG
     Route: 065
  2. INFLIXIMAB [Suspect]
     Active Substance: INFLIXIMAB
     Dosage: 255 MG
     Route: 065
  3. WATER [Suspect]
     Active Substance: WATER
     Indication: Medication dilution
     Dosage: PHARMACEUTICAL DOSE FORM: 236
     Route: 065
  4. WATER [Suspect]
     Active Substance: WATER
     Dosage: PHARMACEUTICAL DOSE FORM: 236
     Route: 065

REACTIONS (3)
  - Diarrhoea [Unknown]
  - Haematochezia [Unknown]
  - Hypertension [Unknown]
